FAERS Safety Report 18851606 (Version 1)
Quarter: 2021Q1

REPORT INFORMATION
  Report Type: Spontaneous
  Country: US (occurrence: US)
  Receive Date: 20210204
  Receipt Date: 20210204
  Transmission Date: 20210420
  Serious: Yes (Hospitalization)
  Sender: FDA-Public Use
  Company Number: None

PATIENT
  Age: 67 Year
  Sex: Male
  Weight: 53 kg

DRUGS (12)
  1. COLACE [Concomitant]
     Active Substance: DOCUSATE SODIUM
  2. POTASSIUM CHLORIDE. [Concomitant]
     Active Substance: POTASSIUM CHLORIDE
  3. TYLENOL [Concomitant]
     Active Substance: ACETAMINOPHEN
  4. CLOBETASOL (TEMOVATE) [Concomitant]
  5. PEMBROLIZUMAB. [Suspect]
     Active Substance: PEMBROLIZUMAB
     Indication: METASTATIC NEOPLASM
     Dosage: ?          OTHER FREQUENCY:Q3WEEKS;?
     Route: 042
     Dates: start: 20210125
  6. LIDOCAINE?PRILOCAINE (EMLA) CREAM [Concomitant]
  7. PRILOSEC [Concomitant]
     Active Substance: OMEPRAZOLE MAGNESIUM
  8. MIRALAX [Concomitant]
     Active Substance: POLYETHYLENE GLYCOL 3350
  9. NOGAPENDEKIN ALFA. [Suspect]
     Active Substance: NOGAPENDEKIN ALFA
     Indication: METASTATIC NEOPLASM
     Dosage: ?          OTHER FREQUENCY:Q3WEEKS;?
     Route: 058
     Dates: start: 20210125
  10. COMPAZINE [Concomitant]
     Active Substance: PROCHLORPERAZINE MALEATE
  11. SENNA (SENOKOT) [Concomitant]
  12. MAGNESIUM HYDROXIDE (MOM CONCENTRATED) [Concomitant]

REACTIONS (10)
  - Swelling [None]
  - Troponin increased [None]
  - Urine analysis abnormal [None]
  - Erythema [None]
  - Heart rate abnormal [None]
  - Injection site pruritus [None]
  - Blood sodium decreased [None]
  - Fibrin D dimer increased [None]
  - Blood calcium increased [None]
  - Chest pain [None]

NARRATIVE: CASE EVENT DATE: 20210203
